FAERS Safety Report 5581917-1 (Version None)
Quarter: 2008Q1

REPORT INFORMATION
  Report Type: 
  Country: None (occurrence: None)
  Receive Date: 20080104
  Receipt Date: 20071220
  Transmission Date: 20080703
  Serious: Yes (Hospitalization)
  Sender: FDA-Public Use
  Company Number: US-ROCHE-423547

PATIENT
  Age: 59 Year
  Sex: Male
  Weight: 97.7 kg

DRUGS (2)
  1. CAPECITABINE [Suspect]
     Dosage: ADMINISTERED THIS COURSE
     Route: 065
     Dates: start: 20050619
  2. OXALIPLATIN [Suspect]
     Dosage: ADMINISTERED THIS COURSE
     Route: 065
     Dates: start: 20050620

REACTIONS (9)
  - ABDOMINAL INFECTION [None]
  - BLOOD CREATININE INCREASED [None]
  - BLOOD UREA INCREASED [None]
  - HAEMOGLOBIN DECREASED [None]
  - HYPERGLYCAEMIA [None]
  - HYPERKALAEMIA [None]
  - HYPOMAGNESAEMIA [None]
  - PHLEBITIS [None]
  - URETERIC OBSTRUCTION [None]
